FAERS Safety Report 7190021-0 (Version None)
Quarter: 2010Q4

REPORT INFORMATION
  Report Type: 
  Country: None (occurrence: None)
  Receive Date: 20101223
  Receipt Date: 20100802
  Transmission Date: 20110411
  Serious: Yes (Hospitalization, Other)
  Sender: FDA-Public Use
  Company Number: US-BAYER-201013545NA

PATIENT
  Sex: Female
  Weight: 106.82 kg

DRUGS (15)
  1. YASMIN [Suspect]
     Indication: CONTRACEPTION
     Route: 048
     Dates: start: 20041123, end: 20070308
  2. ACE INHIBITOR NOS [Concomitant]
  3. ALDOSTERONE ANTAGONISTS [Concomitant]
  4. ANGIOTENSIN II ANTAGONISTS [Concomitant]
  5. ANTIBIOTICS [Concomitant]
  6. ANTITHROMBOTIC AGENTS [Concomitant]
  7. ANTICONVULSIVE [Concomitant]
  8. NSAID'S [Concomitant]
  9. POTASSIUM-SPARING AGENTS [Concomitant]
  10. LOESTRIN 1.5/30 [Concomitant]
     Indication: CONTRACEPTION
  11. MYLANTA [CALCIUM CARBONATE] [Concomitant]
  12. PRENATAL VITAMINS [Concomitant]
     Dates: start: 20060412
  13. IBUPROFEN [Concomitant]
     Dosage: AS NEEDED
  14. DOCUSATE SODIUM [Concomitant]
     Indication: CONSTIPATION
     Dosage: AS NEEDED
  15. ORTHO MICRONOR-28 [Concomitant]
     Dates: start: 20060401

REACTIONS (4)
  - ABDOMINAL PAIN UPPER [None]
  - CHOLELITHIASIS [None]
  - DRUG EXPOSURE BEFORE PREGNANCY [None]
  - PREGNANCY [None]
